FAERS Safety Report 7562306-7 (Version None)
Quarter: 2011Q2

REPORT INFORMATION
  Report Type: 
  Country: None (occurrence: None)
  Receive Date: 20110525
  Receipt Date: 20110505
  Transmission Date: 20111010
  Serious: No
  Sender: FDA-Public Use
  Company Number: 325986

PATIENT
  Age: 59 Year
  Sex: Female

DRUGS (2)
  1. VICTOZA [Suspect]
     Dosage: SUBCUTANEOUS
     Route: 058
  2. VICTOZA [Suspect]
     Indication: TYPE 2 DIABETES MELLITUS
     Dosage: SUBCUTANEOUS
     Route: 058

REACTIONS (3)
  - INCORRECT STORAGE OF DRUG [None]
  - MALAISE [None]
  - DIABETES MELLITUS INADEQUATE CONTROL [None]
